FAERS Safety Report 5413010-2 (Version None)
Quarter: 2007Q3

REPORT INFORMATION
  Report Type: 
  Country: None (occurrence: None)
  Receive Date: 20070809
  Receipt Date: 20070726
  Transmission Date: 20080115
  Serious: Yes (Hospitalization, Other)
  Sender: FDA-Public Use
  Company Number: 2007BM000089

PATIENT
  Age: 6 Year
  Sex: Female
  Weight: 13.4 kg

DRUGS (5)
  1. NAGALAZYME (GALSULFASE) SOLUTION (EXCEPT SYRUP, 1.0MG/ML (NAGLAZYME (G [Suspect]
     Indication: MUCOPOLYSACCHARIDOSIS VI
     Dosage: 1 MG/KG; IV
     Route: 042
     Dates: start: 20070320
  2. FUROSEMIDE [Concomitant]
  3. CAPTOPRIL [Concomitant]
  4. CARVEDILOL [Concomitant]
  5. SPIRONOLACTONE [Concomitant]

REACTIONS (10)
  - DEPRESSED LEVEL OF CONSCIOUSNESS [None]
  - FATIGUE [None]
  - INFUSION RELATED REACTION [None]
  - MUSCULOSKELETAL PAIN [None]
  - NAUSEA [None]
  - PAIN [None]
  - PALLOR [None]
  - PULSE PRESSURE DECREASED [None]
  - SOMNOLENCE [None]
  - TACHYPNOEA [None]
